FAERS Safety Report 8890598 (Version 2)
Quarter: 2013Q1

REPORT INFORMATION
  Report Type: Spontaneous
  Country: JP (occurrence: JP)
  Receive Date: 20121106
  Receipt Date: 20130102
  Transmission Date: 20140127
  Serious: Yes (Hospitalization)
  Sender: FDA-Public Use
  Company Number: JP-WATSON-2012-18877

PATIENT
  Age: 73 Year
  Sex: Male

DRUGS (2)
  1. PREDNISOLONE (UNKNOWN) [Suspect]
     Indication: MYASTHENIA GRAVIS
     Dosage: 25.5 MG, DAILY
     Route: 065
  2. TACROLIMUS (UNKNOWN) [Suspect]
     Indication: MYASTHENIA GRAVIS
     Dosage: 2 MG, DAILY
     Route: 065

REACTIONS (2)
  - Skin necrosis [Not Recovered/Not Resolved]
  - Fungal skin infection [Not Recovered/Not Resolved]
